FAERS Safety Report 5724661-X (Version None)
Quarter: 2008Q2

REPORT INFORMATION
  Report Type: 
  Country: None (occurrence: None)
  Receive Date: 20080501
  Receipt Date: 20080425
  Transmission Date: 20081010
  Serious: Yes (Other)
  Sender: FDA-Public Use
  Company Number: JP-ALLERGAN-0805038US

PATIENT
  Sex: Male

DRUGS (3)
  1. ALESION TABLET [Suspect]
     Indication: DRUG USE FOR UNKNOWN INDICATION
     Route: 048
  2. HALCION [Concomitant]
     Route: 048
  3. URINORM [Concomitant]
     Route: 048

REACTIONS (1)
  - MASS [None]
